FAERS Safety Report 11073582 (Version 1)
Quarter: 2015Q2

REPORT INFORMATION
  Report Type: Spontaneous
  Country: US (occurrence: US)
  Receive Date: 20150428
  Receipt Date: 20150428
  Transmission Date: 20150821
  Serious: Yes (Death, Other)
  Sender: FDA-Public Use
  Company Number: US-MYLANLABS-2015M1012545

PATIENT

DRUGS (2)
  1. CAPECITABINE TABLETS USP [Suspect]
     Active Substance: CAPECITABINE
     Indication: RECTAL CANCER
     Dosage: 500 MG, BID, MONDAY - FRIDAY DURING DAYS OF RADIATION
     Route: 048
     Dates: start: 20150304, end: 201503
  2. CAPECITABINE TABLETS USP [Suspect]
     Active Substance: CAPECITABINE
     Indication: RECTAL CANCER
     Dosage: 150 MG, BID, MONDAY - FRIDAY DURING DAYS OF RADIATION
     Route: 048
     Dates: start: 20150304, end: 201503

REACTIONS (4)
  - Wolff-Parkinson-White syndrome [Not Recovered/Not Resolved]
  - Cardiac disorder [Fatal]
  - Dyspnoea [Not Recovered/Not Resolved]
  - Chest discomfort [Not Recovered/Not Resolved]

NARRATIVE: CASE EVENT DATE: 201503
